FAERS Safety Report 16163492 (Version 8)
Quarter: 2019Q4

REPORT INFORMATION
  Report Type: Spontaneous
  Country: CA (occurrence: CA)
  Receive Date: 20190405
  Receipt Date: 20191230
  Transmission Date: 20200122
  Serious: Yes (Life-Threatening, Hospitalization, Other)
  Sender: FDA-Public Use
  Company Number: CA-PFIZER INC-2019146789

PATIENT
  Age: 60 Year
  Sex: Male
  Weight: 50 kg

DRUGS (76)
  1. CYANOCOBALAMIN. [Suspect]
     Active Substance: CYANOCOBALAMIN
     Dosage: UNK, QD
     Route: 048
  2. PSYLLIUM [PLANTAGO AFRA] [Suspect]
     Active Substance: PLANTAGO AFRA SEED
     Dosage: UNK
     Route: 065
  3. PSYLLIUM [PLANTAGO AFRA] [Suspect]
     Active Substance: PLANTAGO AFRA SEED
     Dosage: UNK
     Route: 065
  4. EPOETIN ALFA [Suspect]
     Active Substance: ERYTHROPOIETIN
     Dosage: UNK
     Route: 065
  5. FLORINEF ACETATE [Suspect]
     Active Substance: FLUDROCORTISONE ACETATE
     Dosage: 0.1 MILLIGRAM, QD
     Route: 065
  6. REVLIMID [Suspect]
     Active Substance: LENALIDOMIDE
     Dosage: 10 MILLIGRAM, QD
     Route: 048
  7. VITAMIN D3 [Suspect]
     Active Substance: CHOLECALCIFEROL
     Dosage: 1000 INTERNATIONAL UNIT, QD
     Route: 065
  8. VITAMIN D3 [Suspect]
     Active Substance: CHOLECALCIFEROL
     Dosage: 1000 INTERNATIONAL UNIT, QD
     Route: 048
  9. VITAMIN C [Suspect]
     Active Substance: ASCORBIC ACID
     Dosage: 600 MG, ONCE DAILY
     Route: 065
  10. SEA WATER [Suspect]
     Active Substance: SEA WATER
     Dosage: UNK UNK, 3X/DAY
     Route: 047
  11. TUMS [CALCIUM CARBONATE;MAGNESIUM CARBONATE;MAGNESIUM TRISILICATE] [Suspect]
     Active Substance: CALCIUM CARBONATE\MAGNESIUM CARBONATE\MAGNESIUM TRISILICATE
     Indication: GASTROINTESTINAL DISORDER
     Dosage: UNK
     Route: 065
  12. BIOTENE [FLUORINE;XYLITOL] [Suspect]
     Active Substance: SODIUM FLUORIDE\SODIUM MONOFLUOROPHOSPHATE
     Dosage: UNK, QD
     Route: 048
  13. ASCORBIC ACID. [Suspect]
     Active Substance: ASCORBIC ACID
     Dosage: 600 MG, 1X/DAY
  14. CHLORPHENIRAMINE MALEATE. [Suspect]
     Active Substance: CHLORPHENIRAMINE MALEATE
     Dosage: 81 MILLIGRAM, QD
     Route: 065
  15. ZINC. [Suspect]
     Active Substance: ZINC
     Dosage: 600 MILLIGRAM, QD
     Route: 065
  16. CALCIUM ASCORBATE/VITAMIN B COMPLEX [Suspect]
     Active Substance: CALCIUM ASCORBATE\VITAMIN B COMPLEX
     Dosage: 600 MILLIGRAM, QD
     Route: 065
  17. CALCIUM CARBONATE. [Suspect]
     Active Substance: CALCIUM CARBONATE
     Indication: GASTROINTESTINAL DISORDER
     Dosage: UNK
     Route: 065
  18. CALCIUM [Suspect]
     Active Substance: CALCIUM
     Dosage: 600 MILLIGRAM, QD
     Route: 065
  19. OTRIVIN SALINE [Suspect]
     Active Substance: SODIUM CHLORIDE
     Dosage: UNK, QID
     Route: 065
  20. LOPERAMIDE HYDROCHLORIDE W/SIMETICONE [Suspect]
     Active Substance: DIMETHICONE\LOPERAMIDE HYDROCHLORIDE
     Indication: DIARRHOEA
     Dosage: 1 DF, DAILY
     Route: 048
  21. VITAMIN B12 [Suspect]
     Active Substance: CYANOCOBALAMIN
     Dosage: 1000 UG, ONCE DAILY
     Route: 048
  22. LODALIS [Suspect]
     Active Substance: COLESEVELAM HYDROCHLORIDE
     Dosage: 625 MG, ONCE DAILY
     Route: 065
  23. TUMS [CALCIUM CARBONATE;MAGNESIUM CARBONATE;MAGNESIUM TRISILICATE] [Suspect]
     Active Substance: CALCIUM CARBONATE\MAGNESIUM CARBONATE\MAGNESIUM TRISILICATE
     Dosage: UNK
  24. BIOTENE [FLUORINE;XYLITOL] [Suspect]
     Active Substance: SODIUM FLUORIDE\SODIUM MONOFLUOROPHOSPHATE
     Dosage: UNK UNK, 2X/DAY
     Route: 048
  25. CALCIUM ASCORBATE/SODIUM ASCORBATE/ZINC CITRATE [Suspect]
     Active Substance: CALCIUM ASCORBATE\SODIUM ASCORBATE\ZINC CITRATE
     Dosage: 600 MG, 1X/DAY
     Route: 065
  26. LOPERAMIDE HYDROCHLORIDE W/SIMETICONE [Suspect]
     Active Substance: DIMETHICONE\LOPERAMIDE HYDROCHLORIDE
     Dosage: UNK
     Route: 065
  27. SEA WATER [Suspect]
     Active Substance: SEA WATER
     Dosage: UNK UNK, QD
     Route: 047
  28. GLYCERINE [Suspect]
     Active Substance: GLYCERIN
     Dosage: UNK
     Route: 048
  29. PSYLLIUM HUSK [PLANTAGO OVATA HUSK] [Suspect]
     Active Substance: HERBALS\PLANTAGO OVATA SEED COAT
     Dosage: 1 DF, ALTERNATE DAY
     Route: 048
  30. VITAMIN D3 [Suspect]
     Active Substance: CHOLECALCIFEROL
     Dosage: 1000 IU, 1X/DAY
     Route: 065
  31. CYANOCOBALAMIN. [Suspect]
     Active Substance: CYANOCOBALAMIN
     Dosage: 1000 MICROGRAM, QD
     Route: 048
  32. LOPERAMIDE HYDROCHLORIDE W/SIMETICONE [Suspect]
     Active Substance: DIMETHICONE\LOPERAMIDE HYDROCHLORIDE
     Dosage: UNK
     Route: 065
  33. PSYLLIUM [PLANTAGO AFRA] [Suspect]
     Active Substance: PLANTAGO AFRA SEED
     Dosage: 1 DF, ALTERNATE DAY
     Route: 065
  34. DEXAMETHASONE. [Suspect]
     Active Substance: DEXAMETHASONE
     Dosage: 4 MG, UNK
     Route: 065
  35. ELTROXIN [Suspect]
     Active Substance: LEVOTHYROXINE
     Dosage: 112 UG, ONCE DAILY
     Route: 048
  36. REVLIMID [Suspect]
     Active Substance: LENALIDOMIDE
     Dosage: 10 MILLIGRAM, Q4WEEKS
  37. DEXAMETHASONE. [Suspect]
     Active Substance: DEXAMETHASONE
     Dosage: 2 MG, UNK
     Route: 065
  38. MIDODRINE HYDROCHLORIDE. [Suspect]
     Active Substance: MIDODRINE HYDROCHLORIDE
     Dosage: 5 MG, ONCE DAILY
     Route: 065
  39. LEVOTHYROXINE. [Suspect]
     Active Substance: LEVOTHYROXINE
     Dosage: 112 UG, 1X/DAY
     Route: 048
  40. PLANTAGO AFRA [Suspect]
     Active Substance: HERBALS
     Dosage: UNK UNK, ALTERNATE DAY (1 EVERY 2 DAY)
  41. CAFFEINE. [Suspect]
     Active Substance: CAFFEINE
     Dosage: 81 MILLIGRAM, QD
     Route: 065
  42. METHYLEPHEDRINE HYDROCHLORIDE [Suspect]
     Active Substance: METHYLEPHEDRINE HYDROCHLORIDE
     Dosage: 81 MILLIGRAM, QD
     Route: 065
  43. PANTOPRAZOLE [Suspect]
     Active Substance: PANTOPRAZOLE
     Dosage: 40 MG, 1X/DAY
     Route: 048
  44. CYANOCOBALAMIN. [Suspect]
     Active Substance: CYANOCOBALAMIN
     Dosage: 1000 MILLIGRAM, QD
     Route: 048
  45. CLOTRIMAZOLE W/HYDROCORTISONE [Suspect]
     Active Substance: CLOTRIMAZOLE\HYDROCORTISONE
     Indication: SCROTAL SWELLING
     Dosage: UNK UNK, WEEKLY
     Route: 065
  46. CLOTRIMAZOLE W/HYDROCORTISONE [Suspect]
     Active Substance: CLOTRIMAZOLE\HYDROCORTISONE
     Dosage: UNK
     Route: 065
  47. FLORINEF ACETATE [Suspect]
     Active Substance: FLUDROCORTISONE ACETATE
     Dosage: 1 MILLIGRAM, QD
     Route: 065
  48. ELTROXIN [Suspect]
     Active Substance: LEVOTHYROXINE
     Dosage: UNK
     Route: 048
  49. VITAMIN D3 [Suspect]
     Active Substance: CHOLECALCIFEROL
     Dosage: 1000 INTERNATIONAL UNIT, QD
     Route: 065
  50. VITAMIN B12 [Suspect]
     Active Substance: CYANOCOBALAMIN
     Dosage: UNK, 1X/DAY
     Route: 048
  51. ASPIRIN [ACETYLSALICYLIC ACID] [Suspect]
     Active Substance: ASPIRIN
     Dosage: 81 MILLIGRAM, QD
     Route: 065
  52. EPREX [Suspect]
     Active Substance: ERYTHROPOIETIN
     Dosage: UNK
     Route: 042
  53. ESTER C [ASCORBIC ACID] [Suspect]
     Active Substance: ASCORBIC ACID
     Dosage: 81 MILLIGRAM, QD
     Route: 065
  54. COLESEVELAM HCL [Suspect]
     Active Substance: COLESEVELAM HYDROCHLORIDE
     Dosage: 625 MG, 1X/DAY
     Route: 065
  55. LENALIDOMIDE [Suspect]
     Active Substance: LENALIDOMIDE
     Indication: PLASMA CELL MYELOMA
     Dosage: UNK, CYCLIC
     Route: 048
  56. FLUDROCORTISONE [Suspect]
     Active Substance: FLUDROCORTISONE
     Dosage: 0.1 MILLIGRAM, QD
     Route: 065
  57. HYDROCORTISONE. [Suspect]
     Active Substance: HYDROCORTISONE
     Dosage: UNK UNK, 2X/WEEK
     Route: 065
  58. DEXAMETHASONE. [Suspect]
     Active Substance: DEXAMETHASONE
     Dosage: 8 MILLIGRAM, QD
     Route: 048
  59. DEXAMETHASONE. [Suspect]
     Active Substance: DEXAMETHASONE
     Dosage: 4 MILLIGRAM, BID
     Route: 048
  60. DEXAMETHASONE. [Suspect]
     Active Substance: DEXAMETHASONE
     Dosage: 8 MG, UNK
     Route: 048
  61. REVLIMID [Suspect]
     Active Substance: LENALIDOMIDE
     Indication: PLASMA CELL MYELOMA
     Dosage: 10 MILLIGRAM, QD
     Route: 048
  62. REVLIMID [Suspect]
     Active Substance: LENALIDOMIDE
     Dosage: 10 MILLIGRAM, QD
     Route: 048
  63. ASPIRIN [ACETYLSALICYLIC ACID] [Suspect]
     Active Substance: ASPIRIN
     Dosage: 600 MILLIGRAM, QD
     Route: 065
  64. CALCIUM ASCORBATE [Suspect]
     Active Substance: CALCIUM ASCORBATE
     Dosage: 600 MG, ONCE DAILY
     Route: 065
  65. BIOTENE [FLUORINE;XYLITOL] [Suspect]
     Active Substance: SODIUM FLUORIDE\SODIUM MONOFLUOROPHOSPHATE
     Dosage: UNK
     Route: 048
  66. SIMETHICONE (DIMETHICONE) [Suspect]
     Active Substance: DIMETHICONE
     Indication: DIARRHOEA
     Dosage: 120 MG, 3X/DAY
     Route: 065
  67. ESTER C [ASCORBIC ACID] [Suspect]
     Active Substance: ASCORBIC ACID
     Dosage: 600 MG, 1X/DAY
     Route: 065
  68. ACETYLSALICYLIC ACID/ASCORBIC ACID [Suspect]
     Active Substance: ACETAMINOPHEN\ASCORBIC ACID
     Dosage: 81 MG, 1X/DAY
     Route: 065
  69. FLUDROCORTISONE [Suspect]
     Active Substance: FLUDROCORTISONE
     Dosage: 0.1 MG, 1X/DAY
     Route: 065
  70. VITAMIN D3 [Suspect]
     Active Substance: CHOLECALCIFEROL
     Dosage: 1000 INTERNATIONAL UNIT, QD
     Route: 065
  71. ASPIRIN [ACETYLSALICYLIC ACID] [Suspect]
     Active Substance: ASPIRIN
     Dosage: 81 MG, ONCE DAILY
     Route: 065
  72. CALCIUM ASCORBATE [Suspect]
     Active Substance: CALCIUM ASCORBATE
     Dosage: 600 MILLIGRAM, QD
     Route: 065
  73. FLUORINE W/XYLITOL [Suspect]
     Active Substance: FLUORINE\XYLITOL
     Dosage: UNK, DAILY
     Route: 048
  74. HYALURONATE NA [Suspect]
     Active Substance: HYALURONATE SODIUM
     Dosage: UNK UNK, 3X/DAY
     Route: 047
  75. RIBOFLAVIN [Suspect]
     Active Substance: RIBOFLAVIN
     Dosage: 81 MILLIGRAM, QD
     Route: 065
  76. MIDODRINE [Suspect]
     Active Substance: MIDODRINE
     Dosage: 5 MILLIGRAM, QD
     Route: 065

REACTIONS (4)
  - Speech disorder [Not Recovered/Not Resolved]
  - Cerebrovascular accident [Not Recovered/Not Resolved]
  - Disorientation [Not Recovered/Not Resolved]
  - Confusional state [Not Recovered/Not Resolved]
